FAERS Safety Report 8698254 (Version 3)
Quarter: 2012Q4

REPORT INFORMATION
  Report Type: 
  Country: US (occurrence: None)
  Receive Date: 20120717
  Receipt Date: 20120831
  Transmission Date: 20130627
  Serious: Yes (Hospitalization, Other)
  Sender: FDA-Public Use
  Company Number: AUR-APL-2012-02913

PATIENT
  Age: 56 Year
  Sex: Female

DRUGS (10)
  1. TRIMETHOPRIM + SULFAMETHOXAZOLE [Suspect]
     Indication: PNEUMOCYSTIS JIROVECI PNEUMONIA
     Dosage: INTRAVENOUS, ONE DOUBLE STRENGTH TABLET TWICE DAILY, EVERY MONDAY AND TUESDAY, ORAL
     Route: 040
  2. TRIMETHOPRIM + SULFAMETHOXAZOLE [Suspect]
     Indication: PROPHYLAXIS
     Dosage: INTRAVENOUS, ONE DOUBLE STRENGTH TABLET TWICE DAILY, EVERY MONDAY AND TUESDAY, ORAL
     Route: 040
  3. LEVOFLOXACIN [Suspect]
     Indication: ANTIBIOTIC PROPHYLAXIS
     Dosage: 250 MG (250 MG, 1 IN 1 D)
  4. PREDNISONE [Suspect]
     Indication: CHRONIC GRAFT VERSUS HOST DISEASE
     Dosage: 10 MG DAILY
  5. VANCOMYCIN [Suspect]
     Indication: CLOSTRIDIUM TEST
     Dosage: 500 MG (125 MG, 4 IN 1 D), ORAL
     Route: 048
  6. METRONIDAZOLE [Suspect]
     Indication: CLOSTRIDIUM TEST POSITIVE
     Dosage: 1500 MG (500 MG, 1 IN 8 HR), INTRAVENOUS
     Route: 042
  7. LINEZOLID [Suspect]
     Indication: URINARY TRACT INFECTION ENTEROCOCCAL
     Dosage: 1200 MG (600 MG, 2 IN 1 D)
  8. PENTAMIDINE ISETHIONATE [Suspect]
     Indication: PNEUMOCYSTIS JIROVECI INFECTION
     Dosage: (1 IN 28 D)
  9. FLUCONAZOLE [Concomitant]
  10. ACYCLOVIR SODIUM [Concomitant]

REACTIONS (14)
  - Clostridial infection [None]
  - Confusional state [None]
  - Tachycardia [None]
  - Hypotension [None]
  - Hypoxia [None]
  - Urinary tract infection enterococcal [None]
  - Mental status changes [None]
  - Hypercapnia [None]
  - Respiratory failure [None]
  - Pneumocystis jiroveci pneumonia [None]
  - Blood lactic acid increased [None]
  - Respiratory muscle weakness [None]
  - Intestinal dilatation [None]
  - Intestinal mucosal hypertrophy [None]
